FAERS Safety Report 26037688 (Version 2)
Quarter: 2025Q4

REPORT INFORMATION
  Report Type: Report from Study
  Country: EU (occurrence: EU)
  Receive Date: 20251112
  Receipt Date: 20251202
  Transmission Date: 20260118
  Serious: Yes (Hospitalization)
  Sender: ABBVIE
  Company Number: EU-ABBVIE-6544446

PATIENT
  Age: 72 Year
  Sex: Male

DRUGS (2)
  1. CARBIDOPA\LEVODOPA [Suspect]
     Active Substance: CARBIDOPA\LEVODOPA
     Indication: Parkinson^s disease
     Dosage: 20MG LEVODOPA + 5MG CARBIDOPA MORNING DOSE 13CC; CONTINUOUS DOSE 3.8CC/H; ?EXTRA DOSE 1CC.
     Route: 050
     Dates: start: 20240716
  2. CARBIDOPA\LEVODOPA [Suspect]
     Active Substance: CARBIDOPA\LEVODOPA
     Dosage: 20MG LEVODOPA + 5MG CARBIDOPA MORNING DOSE 11CC; CONTINUOUS DOSE 4.8 CC/H; DOSE EXTRA 1CC.
     Route: 050
     Dates: start: 2025

REACTIONS (5)
  - Dyspnoea [Recovered/Resolved]
  - Lip swelling [Recovered/Resolved]
  - Swollen tongue [Recovered/Resolved]
  - Speech disorder [Recovered/Resolved]
  - Dyslipidaemia [Not Recovered/Not Resolved]

NARRATIVE: CASE EVENT DATE: 20250101
